FAERS Safety Report 10365168 (Version 2)
Quarter: 2014Q3

REPORT INFORMATION
  Report Type: Spontaneous
  Country: US (occurrence: US)
  Receive Date: 20140806
  Receipt Date: 20140827
  Transmission Date: 20150326
  Serious: Yes (Hospitalization)
  Sender: FDA-Public Use
  Company Number: US-BAYER-2014-114276

PATIENT
  Age: 20 Year
  Sex: Female
  Weight: 46.71 kg

DRUGS (1)
  1. MIRENA [Suspect]
     Active Substance: LEVONORGESTREL
     Indication: CONTRACEPTION
     Dosage: 20 MCG/24HR, CONT
     Route: 015
     Dates: start: 20060324, end: 20070918

REACTIONS (5)
  - Pelvic pain [None]
  - Injury [None]
  - Pain [None]
  - Pelvic adhesions [None]
  - Uterine perforation [None]

NARRATIVE: CASE EVENT DATE: 2007
